FAERS Safety Report 4510494-9 (Version None)
Quarter: 2004Q4

REPORT INFORMATION
  Report Type: 
  Country: None (occurrence: None)
  Receive Date: 20041122
  Receipt Date: 20041104
  Transmission Date: 20050328
  Serious: Yes (Hospitalization)
  Sender: FDA-Public Use
  Company Number: A0532620A

PATIENT
  Age: 82 Year
  Sex: Male
  Weight: 97.977 kg

DRUGS (9)
  1. TAGAMET HB [Suspect]
     Indication: FLATULENCE
     Dosage: ORAL
     Route: 048
     Dates: start: 20041001
  2. CLOPIDOGREL BISULFATE [Concomitant]
  3. ASPIRIN [Concomitant]
  4. BENAZEPRIL HCL [Concomitant]
  5. SIMVASTATIN [Concomitant]
  6. ESOMEPRAZOLE [Concomitant]
  7. BISMUTH SUBSALICYLATE [Concomitant]
  8. TRIAMCINOLONE ACETONIDE [Concomitant]
  9. SODIUM CHLORIDE [Concomitant]

REACTIONS (8)
  - AORTIC DILATATION [None]
  - CORONARY ARTERY OCCLUSION [None]
  - FEELING COLD [None]
  - GASTROOESOPHAGEAL REFLUX DISEASE [None]
  - NIGHT SWEATS [None]
  - POOR PERIPHERAL CIRCULATION [None]
  - POST PROCEDURAL COMPLICATION [None]
  - POSTNASAL DRIP [None]
